FAERS Safety Report 18542208 (Version 4)
Quarter: 2021Q1

REPORT INFORMATION
  Report Type: Spontaneous
  Country: US (occurrence: US)
  Receive Date: 20201124
  Receipt Date: 20210331
  Transmission Date: 20210419
  Serious: No
  Sender: FDA-Public Use
  Company Number: US-PFIZER INC-2020461426

PATIENT
  Age: 72 Year
  Sex: Female

DRUGS (2)
  1. XELJANZ XR [Suspect]
     Active Substance: TOFACITINIB CITRATE
     Indication: RHEUMATOID ARTHRITIS
     Dosage: 11 MG, DAILY
     Route: 048
     Dates: start: 20201013, end: 2020
  2. XELJANZ XR [Suspect]
     Active Substance: TOFACITINIB CITRATE
     Dosage: 11 MG
     Dates: start: 20201218, end: 20210219

REACTIONS (8)
  - Back pain [Unknown]
  - Hypertension [Unknown]
  - Blood cholesterol increased [Unknown]
  - Pain [Unknown]
  - Fatigue [Unknown]
  - Herpes zoster [Unknown]
  - Anaemia [Unknown]
  - Rash [Unknown]

NARRATIVE: CASE EVENT DATE: 20201119
